FAERS Safety Report 13839643 (Version 1)
Quarter: 2017Q3

REPORT INFORMATION
  Report Type: Spontaneous
  Country: GB (occurrence: GB)
  Receive Date: 20170807
  Receipt Date: 20170807
  Transmission Date: 20171127
  Serious: Yes (Other)
  Sender: FDA-Public Use
  Company Number: GB-TEVA-793053ACC

PATIENT
  Age: 50 Year
  Sex: Male
  Weight: 94.34 kg

DRUGS (3)
  1. OMEPRAZOLE. [Concomitant]
     Active Substance: OMEPRAZOLE
     Dosage: MANY YEARS.
  2. CLONAZEPAM. [Suspect]
     Active Substance: CLONAZEPAM
     Indication: SLEEP DISORDER
     Route: 048
     Dates: start: 20170704
  3. CLONAZEPAM. [Suspect]
     Active Substance: CLONAZEPAM
     Indication: NIGHTMARE
     Route: 048
     Dates: start: 20170629, end: 20170703

REACTIONS (3)
  - Depression [Recovering/Resolving]
  - Palpitations [Recovered/Resolved]
  - Mood swings [Recovering/Resolving]

NARRATIVE: CASE EVENT DATE: 20170705
